FAERS Safety Report 10099238 (Version 3)
Quarter: 2014Q2

REPORT INFORMATION
  Report Type: Spontaneous
  Country: US (occurrence: US)
  Receive Date: 20140423
  Receipt Date: 20140514
  Transmission Date: 20141212
  Serious: No
  Sender: FDA-Public Use
  Company Number: US-PFIZER INC-2014109115

PATIENT
  Age: 75 Year
  Sex: Male

DRUGS (1)
  1. SUTENT [Suspect]
     Dosage: 50 MG, 1X/DAY
     Route: 048
     Dates: start: 20140313

REACTIONS (1)
  - Fatigue [Not Recovered/Not Resolved]
